FAERS Safety Report 5650216-1 (Version None)
Quarter: 2008Q1

REPORT INFORMATION
  Report Type: 
  Country: None (occurrence: None)
  Receive Date: 20080131
  Receipt Date: 20071213
  Transmission Date: 20080703
  Serious: No
  Sender: FDA-Public Use
  Company Number: US200712003001

PATIENT
  Age: 70 Year
  Sex: Male
  Weight: 113.4 kg

DRUGS (16)
  1. BYETTA [Suspect]
     Indication: TYPE 2 DIABETES MELLITUS
     Dosage: 5 UG, 2/D, SUBCUTANEOUS ; 10 UG, 2/D, SUBCUTANEOUS
     Route: 058
     Dates: start: 20060701, end: 20060101
  2. BYETTA [Suspect]
     Indication: TYPE 2 DIABETES MELLITUS
     Dosage: 5 UG, 2/D, SUBCUTANEOUS ; 10 UG, 2/D, SUBCUTANEOUS
     Route: 058
     Dates: start: 20060101, end: 20071101
  3. METFORMIN HCL [Concomitant]
  4. PRINIVIL [Concomitant]
  5. TRIAMTERENE(TRIAMTERENE) [Concomitant]
  6. ALBUTEROL SULFATE [Concomitant]
  7. SPIRIVA [Concomitant]
  8. ADVAIR DISKUS 100/50 [Concomitant]
  9. NEXIUM [Concomitant]
  10. VYTORIN [Concomitant]
  11. ASPIRIN [Concomitant]
  12. PREDNISONE TAB [Concomitant]
  13. QUNIINE SULFATE (QUININE SULFATE) [Concomitant]
  14. TUSSIONEX [Concomitant]
  15. NITROGLYCERIN [Concomitant]
  16. TRAVATAN [Concomitant]

REACTIONS (10)
  - DIARRHOEA [None]
  - DYSPEPSIA [None]
  - FEELING JITTERY [None]
  - FLATULENCE [None]
  - GASTROOESOPHAGEAL REFLUX DISEASE [None]
  - INFLUENZA LIKE ILLNESS [None]
  - SLUGGISHNESS [None]
  - STOMACH DISCOMFORT [None]
  - TREMOR [None]
  - WEIGHT DECREASED [None]
